FAERS Safety Report 9075247 (Version 1)
Quarter: 2013Q1

REPORT INFORMATION
  Report Type: Report from Study
  Country: US (occurrence: US)
  Receive Date: 20130131
  Receipt Date: 20130131
  Transmission Date: 20140127
  Serious: No
  Sender: FDA-Public Use
  Company Number: US-ABBOTT-12P-163-1006358-00

PATIENT
  Age: 35 Year
  Sex: Female

DRUGS (10)
  1. HUMIRA [Suspect]
     Indication: CROHN^S DISEASE
     Dates: start: 201107
  2. PROTONIX [Concomitant]
     Indication: DYSPEPSIA
     Dosage: 40 MG DAILY
  3. DETROL LA [Concomitant]
     Indication: POLLAKIURIA
     Dosage: 4 MG DAILY
  4. ADVAIR DISCUS [Concomitant]
     Indication: ASTHMA
  5. KLOR-CON [Concomitant]
     Indication: BLOOD POTASSIUM DECREASED
     Dosage: 20 MEQ DAILY
  6. LEVOTHYROXIN [Concomitant]
     Indication: BLOOD THYROID STIMULATING HORMONE DECREASED
     Dosage: 50 MCG DAILY
  7. RELAFEN [Concomitant]
     Indication: ARTHRITIS
  8. LORTAB [Concomitant]
     Indication: PAIN
     Dosage: 1 PILL (7.5/50 MG) EVERY 6-8 HOURS AS NEEDED
  9. LORTAB [Concomitant]
     Indication: ARTHRITIS
  10. ALLOPURINOL [Concomitant]
     Indication: GOUT
     Dosage: DAILY

REACTIONS (1)
  - Drug ineffective [Not Recovered/Not Resolved]
